FAERS Safety Report 14497999 (Version 1)
Quarter: 2018Q1

REPORT INFORMATION
  Report Type: Spontaneous
  Country: GB (occurrence: GB)
  Receive Date: 20180207
  Receipt Date: 20180207
  Transmission Date: 20180509
  Serious: Yes (Other)
  Sender: FDA-Public Use
  Company Number: GB-JNJFOC-20180202754

PATIENT
  Age: 72 Year
  Sex: Male

DRUGS (2)
  1. IBRUTINIB [Suspect]
     Active Substance: IBRUTINIB
     Indication: CHRONIC LYMPHOCYTIC LEUKAEMIA
     Route: 048
     Dates: end: 201506
  2. IBRUTINIB [Suspect]
     Active Substance: IBRUTINIB
     Indication: CHRONIC LYMPHOCYTIC LEUKAEMIA
     Route: 048
     Dates: start: 201604, end: 201608

REACTIONS (5)
  - Lymphocytosis [Recovering/Resolving]
  - Contusion [Unknown]
  - Rash [Recovering/Resolving]
  - Lymphadenopathy [Not Recovered/Not Resolved]
  - Colon cancer metastatic [Unknown]

NARRATIVE: CASE EVENT DATE: 201609
